FAERS Safety Report 17691326 (Version 1)
Quarter: 2020Q2

REPORT INFORMATION
  Report Type: Spontaneous
  Country: US (occurrence: US)
  Receive Date: 20200422
  Receipt Date: 20200422
  Transmission Date: 20200714
  Serious: Yes (Hospitalization)
  Sender: FDA-Public Use
  Company Number: US-TEVA-2020-US-1224675

PATIENT
  Sex: Female

DRUGS (4)
  1. METOPROLOL. [Suspect]
     Active Substance: METOPROLOL
     Indication: PRINZMETAL ANGINA
     Dosage: 25 MILLIGRAM DAILY;
     Route: 065
  2. POTASSIUM [Concomitant]
     Active Substance: POTASSIUM
     Indication: HYPOKALAEMIA
     Route: 065
  3. HEPARIN [Concomitant]
     Active Substance: HEPARIN SODIUM
     Route: 050
  4. ASPIRIN. [Suspect]
     Active Substance: ASPIRIN
     Indication: PRINZMETAL ANGINA
     Dosage: 325 MILLIGRAM DAILY;
     Route: 048

REACTIONS (2)
  - Prinzmetal angina [Recovered/Resolved]
  - Ventricular tachycardia [Recovered/Resolved]
